FAERS Safety Report 5628504-4 (Version None)
Quarter: 2008Q1

REPORT INFORMATION
  Report Type: 
  Country: None (occurrence: None)
  Receive Date: 20080215
  Receipt Date: 20080208
  Transmission Date: 20080703
  Serious: Yes (Other)
  Sender: FDA-Public Use
  Company Number: US-GENENTECH-255792

PATIENT
  Age: 64 Year
  Sex: Female

DRUGS (6)
  1. AVASTIN [Suspect]
     Indication: BREAST CANCER METASTATIC
     Dosage: 15 MG/KG, Q3W
     Route: 042
     Dates: start: 20060703
  2. XELODA [Concomitant]
     Indication: BREAST CANCER METASTATIC
     Dosage: 1000 MG, QAM
     Dates: start: 20060601
  3. XELODA [Concomitant]
     Dosage: 1500 MG, QPM
  4. SYNTHROID [Concomitant]
     Indication: DRUG USE FOR UNKNOWN INDICATION
  5. LISINOPRIL [Concomitant]
     Indication: DRUG USE FOR UNKNOWN INDICATION
     Dosage: 20 MG, UNK
  6. MEDICATION (UNK INGREDIENT) [Concomitant]
     Indication: BLOOD PRESSURE

REACTIONS (2)
  - PROTEINURIA [None]
  - PSEUDOEXFOLIATION OF LENS CAPSULE [None]
